FAERS Safety Report 17238820 (Version 1)
Quarter: 2020Q1

REPORT INFORMATION
  Report Type: Spontaneous
  Country: US (occurrence: US)
  Receive Date: 20200105
  Receipt Date: 20200105
  Transmission Date: 20200409
  Serious: Yes (Other)
  Sender: FDA-Public Use
  Company Number: None

PATIENT
  Age: 56 Year
  Sex: Female
  Weight: 80.1 kg

DRUGS (9)
  1. ARMOUR THYROID [Concomitant]
     Active Substance: THYROID, PORCINE
  2. TRIAMCINOLON CREME [Concomitant]
  3. OMPRESOLE [Concomitant]
  4. PREMPRO [Concomitant]
     Active Substance: ESTROGENS, CONJUGATED\MEDROXYPROGESTERONE ACETATE
  5. REPATHA [Suspect]
     Active Substance: EVOLOCUMAB
     Indication: BLOOD CHOLESTEROL INCREASED
     Dosage: ?          QUANTITY:1 INJECTION(S);OTHER FREQUENCY:EVERY 2 WEEKS;OTHER ROUTE:INJECTION IN STOMACH?
  6. VITAMIN D [Concomitant]
     Active Substance: VITAMIN D NOS
  7. MISCONTIN [Concomitant]
  8. BETAMETHASONE DISPROPIONATE [Concomitant]
  9. XYZL [Concomitant]

REACTIONS (4)
  - Blister [None]
  - Rash pruritic [None]
  - Pruritus [None]
  - Rash [None]

NARRATIVE: CASE EVENT DATE: 20181010
